FAERS Safety Report 10885897 (Version 1)
Quarter: 2015Q1

REPORT INFORMATION
  Report Type: Spontaneous
  Country: US (occurrence: US)
  Receive Date: 20150304
  Receipt Date: 20150304
  Transmission Date: 20150721
  Serious: Yes (Death)
  Sender: FDA-Public Use
  Company Number: US-BANPHARM-20153550

PATIENT
  Age: 41 Year
  Sex: Female

DRUGS (4)
  1. DIPHENHYDRAMINE UNKNOWN PRODUCT [Suspect]
     Active Substance: DIPHENHYDRAMINE
  2. METHADONE [Suspect]
     Active Substance: METHADONE HYDROCHLORIDE
  3. ACETAMINOPHEN. [Suspect]
     Active Substance: ACETAMINOPHEN
  4. COCAINE [Suspect]
     Active Substance: COCAINE

REACTIONS (2)
  - Drug abuse [Fatal]
  - Exposure via ingestion [None]
